FAERS Safety Report 8135351-0 (Version None)
Quarter: 2012Q1

REPORT INFORMATION
  Report Type: 
  Country: None (occurrence: None)
  Receive Date: 20120214
  Receipt Date: 20120210
  Transmission Date: 20120608
  Serious: Yes (Death, Hospitalization)
  Sender: FDA-Public Use
  Company Number: JP-B.I. PHARMACEUTICALS,INC./RIDGEFIELD-2012-BP-02185NB

PATIENT
  Sex: Female
  Weight: 60 kg

DRUGS (14)
  1. CARNACULIN [Suspect]
     Dosage: 100 U
     Route: 048
  2. FAMOTIDINE [Concomitant]
     Dosage: 30 MG
     Route: 048
  3. AMOBAN [Concomitant]
     Dosage: 7.5 MG
     Route: 048
  4. FOLIC ACID [Concomitant]
     Dosage: 5 MG
     Route: 048
  5. MYONAL [Concomitant]
     Dosage: 150 MG
     Route: 048
  6. NICORANDIS [Suspect]
     Dosage: 15 MG
     Route: 048
  7. CANDESARTAN CILEXETIL [Concomitant]
     Dosage: 4 MG
     Route: 048
  8. LANSOPRAZOLE [Concomitant]
     Dosage: 15 MG
     Route: 048
  9. MICARDIS [Concomitant]
     Dosage: 40 MG
     Route: 048
  10. RHEUMATREX [Concomitant]
     Dosage: 6 MG
     Route: 048
  11. TIZANIDINE HCL [Concomitant]
     Dosage: 1 MG
     Route: 048
  12. CIPROFLOXACIN [Concomitant]
     Dosage: 600 MG
     Route: 048
  13. CELECOXIB [Concomitant]
     Dosage: 200 MG
     Route: 048
  14. PRADAXA [Suspect]
     Dosage: 220 MG
     Route: 048

REACTIONS (1)
  - CEREBRAL HAEMORRHAGE [None]
